FAERS Safety Report 25020767 (Version 2)
Quarter: 2025Q1

REPORT INFORMATION
  Report Type: Report from Study
  Country: US (occurrence: US)
  Receive Date: 20250227
  Receipt Date: 20250321
  Transmission Date: 20250409
  Serious: Yes (Other)
  Sender: UCB
  Company Number: US-UCBSA-2025010866

PATIENT
  Sex: Male
  Weight: 29 kg

DRUGS (2)
  1. FINTEPLA [Suspect]
     Active Substance: FENFLURAMINE
     Indication: Severe myoclonic epilepsy of infancy
     Dosage: 4 MILLILITER, 2X/DAY (BID)
     Dates: start: 20220427
  2. FINTEPLA [Suspect]
     Active Substance: FENFLURAMINE
     Dates: start: 20250305

REACTIONS (1)
  - Tricuspid valve incompetence [Not Recovered/Not Resolved]
